FAERS Safety Report 6228677-9 (Version None)
Quarter: 2009Q2

REPORT INFORMATION
  Report Type: 
  Country: None (occurrence: None)
  Receive Date: 20090615
  Receipt Date: 20070521
  Transmission Date: 20091009
  Serious: Yes (Other)
  Sender: FDA-Public Use
  Company Number: US-ASTRAZENECA-2006UW07995

PATIENT
  Age: 480 Month
  Sex: Male
  Weight: 141.5 kg

DRUGS (19)
  1. SEROQUEL [Suspect]
     Indication: DEPRESSION
     Dosage: 100 MG-900 MG
     Route: 048
     Dates: start: 20040413
  2. SEROQUEL [Suspect]
     Indication: SLEEP DISORDER
     Dosage: 100 MG-900 MG
     Route: 048
     Dates: start: 20040413
  3. SEROQUEL [Suspect]
     Route: 048
  4. SEROQUEL [Suspect]
     Route: 048
  5. TOPAMAX [Concomitant]
     Dosage: 100 MG-600 MG
     Route: 048
  6. BACLOFEN [Concomitant]
  7. PERCOCET [Concomitant]
     Dosage: STRENGTH 325/5 MG, 2 TABLETS 6 TIMES A DAY
  8. DIAZEPAM [Concomitant]
     Indication: MUSCLE SPASMS
  9. ALPRAZOLAM [Concomitant]
     Indication: PANIC DISORDER
     Dosage: 0.5 MG -4 MG
     Route: 048
  10. ALPRAZOLAM [Concomitant]
     Indication: MUSCLE SPASMS
     Dosage: 0.5 MG -4 MG
     Route: 048
  11. ALPRAZOLAM [Concomitant]
     Indication: ANXIETY
     Dosage: 0.5 MG -4 MG
     Route: 048
  12. IMITREX [Concomitant]
     Indication: HEADACHE
     Route: 048
  13. FIORINAL [Concomitant]
     Indication: HEADACHE
     Dosage: ONE UP TO B.I.D
     Route: 048
  14. FIORINAL [Concomitant]
     Indication: MIGRAINE
     Dosage: ONE UP TO B.I.D
     Route: 048
  15. PRILOSEC [Concomitant]
     Route: 048
  16. PROPRANOLOL HYDROCHLORIDE [Concomitant]
     Dosage: 40 MG -160 MG
  17. BEXTRA [Concomitant]
  18. ELAVIL [Concomitant]
     Indication: BACK PAIN
  19. AVANDIA [Concomitant]

REACTIONS (3)
  - DIABETES MELLITUS [None]
  - DIABETIC NEUROPATHY [None]
  - TYPE 2 DIABETES MELLITUS [None]
